FAERS Safety Report 25980211 (Version 1)
Quarter: 2025Q4

REPORT INFORMATION
  Report Type: Spontaneous
  Country: JP (occurrence: JP)
  Receive Date: 20251030
  Receipt Date: 20251030
  Transmission Date: 20260117
  Serious: Yes (Other)
  Sender: TEVA
  Company Number: JP-TEVA-VS-3386616

PATIENT
  Age: 26 Year
  Sex: Female

DRUGS (2)
  1. ARSENIC TRIOXIDE [Suspect]
     Active Substance: ARSENIC TRIOXIDE
     Indication: Acute promyelocytic leukaemia
     Route: 042
  2. TRETINOIN [Suspect]
     Active Substance: TRETINOIN
     Indication: Acute promyelocytic leukaemia
     Dosage: VESANOID
     Route: 065

REACTIONS (5)
  - Intracranial pressure increased [Unknown]
  - Nausea [Unknown]
  - Cerebral venous sinus thrombosis [Recovered/Resolved]
  - Papilloedema [Unknown]
  - VIth nerve paralysis [Unknown]
